FAERS Safety Report 25640238 (Version 1)
Quarter: 2025Q3

REPORT INFORMATION
  Report Type: Spontaneous
  Country: US (occurrence: None)
  Receive Date: 20250801
  Receipt Date: 20250801
  Transmission Date: 20251020
  Serious: Yes (Disabling)
  Sender: FDA-CTU
  Company Number: None

PATIENT
  Age: 33 Year
  Sex: Male
  Weight: 92.25 kg

DRUGS (3)
  1. BUPRENORPHINE\NALOXONE [Suspect]
     Active Substance: BUPRENORPHINE\NALOXONE
     Indication: Drug dependence
     Dates: start: 20210101, end: 20250731
  2. BUPRENORPHINE [Concomitant]
     Active Substance: BUPRENORPHINE
  3. VITAMIN D NOS [Concomitant]
     Active Substance: CHOLECALCIFEROL\ERGOCALCIFEROL

REACTIONS (4)
  - Product substitution issue [None]
  - Peripheral swelling [None]
  - Peripheral swelling [None]
  - Impaired work ability [None]

NARRATIVE: CASE EVENT DATE: 20220101
